FAERS Safety Report 6927795-7 (Version None)
Quarter: 2010Q3

REPORT INFORMATION
  Report Type: 
  Country: None (occurrence: None)
  Receive Date: 20100817
  Receipt Date: 20100805
  Transmission Date: 20110219
  Serious: Yes (Other)
  Sender: FDA-Public Use
  Company Number: US-CELGENEUS-163-20785-10071443

PATIENT
  Sex: Female

DRUGS (8)
  1. THALOMID [Suspect]
     Indication: GASTROINTESTINAL HAEMORRHAGE
     Route: 048
     Dates: start: 20090401
  2. THALOMID [Suspect]
     Route: 048
     Dates: start: 20090701
  3. THALOMID [Suspect]
     Route: 048
     Dates: start: 20090801
  4. THALOMID [Suspect]
     Route: 048
     Dates: start: 20100401, end: 20100715
  5. BIRTH CONTROL [Concomitant]
     Route: 048
     Dates: start: 20090101
  6. IRON [Concomitant]
     Indication: ANAEMIA
     Route: 048
  7. TOPAMAX [Concomitant]
     Route: 048
     Dates: start: 20080801
  8. SYNTHROID [Concomitant]
     Indication: HYPOTHYROIDISM
     Route: 048
     Dates: start: 20091101

REACTIONS (2)
  - CAROTID ARTERY STENOSIS [None]
  - HYPOGLYCAEMIA [None]
